FAERS Safety Report 10021996 (Version 2)
Quarter: 2014Q1

REPORT INFORMATION
  Report Type: Report from Study
  Country: JP (occurrence: JP)
  Receive Date: 20140319
  Receipt Date: 20140328
  Transmission Date: 20141002
  Serious: Yes (Other)
  Sender: FDA-Public Use
  Company Number: JP-UCBSA-114734

PATIENT
  Age: 47 Year
  Sex: Female
  Weight: 53.5 kg

DRUGS (25)
  1. CERTOLIZUMAB PEGOL [Suspect]
     Indication: RHEUMATOID ARTHRITIS
     Route: 058
     Dates: start: 20121030, end: 20130221
  2. CERTOLIZUMAB PEGOL [Suspect]
     Indication: RHEUMATOID ARTHRITIS
     Route: 058
     Dates: start: 20130415
  3. PLACEBO [Suspect]
     Indication: RHEUMATOID ARTHRITIS
     Route: 058
     Dates: start: 20120515
  4. RHEUMATREX [Suspect]
     Indication: RHEUMATOID ARTHRITIS
     Route: 048
     Dates: start: 20130220, end: 20130221
  5. RHEUMATREX [Suspect]
     Indication: RHEUMATOID ARTHRITIS
     Route: 048
     Dates: start: 20120905, end: 20130214
  6. RHEUMATREX [Suspect]
     Indication: RHEUMATOID ARTHRITIS
     Route: 048
     Dates: start: 20120711, end: 20120829
  7. RHEUMATREX [Suspect]
     Indication: RHEUMATOID ARTHRITIS
     Route: 048
     Dates: start: 20120627, end: 20120704
  8. RHEUMATREX [Suspect]
     Indication: RHEUMATOID ARTHRITIS
     Route: 048
     Dates: start: 20120613, end: 20120620
  9. RHEUMATREX [Suspect]
     Indication: RHEUMATOID ARTHRITIS
     Route: 048
     Dates: start: 20120530, end: 20120606
  10. RHEUMATREX [Suspect]
     Indication: RHEUMATOID ARTHRITIS
     Route: 048
     Dates: start: 20120516, end: 20120523
  11. PREDOHAN [Concomitant]
     Indication: RHEUMATOID ARTHRITIS
     Route: 048
     Dates: start: 20120503, end: 20130221
  12. FOLIAMIN [Concomitant]
     Indication: PROPHYLAXIS
     Route: 048
     Dates: start: 20120518, end: 20130215
  13. CELECOX [Concomitant]
     Indication: RHEUMATOID ARTHRITIS
     Route: 048
     Dates: start: 20120710, end: 20130304
  14. GLUCONSAN K [Concomitant]
     Indication: HYPOKALAEMIA
     Route: 048
     Dates: end: 20130304
  15. MAGLAX [Concomitant]
     Indication: CONSTIPATION
     Dates: end: 20130304
  16. PURSENNID [Concomitant]
     Indication: CONSTIPATION
     Route: 048
     Dates: start: 20120510
  17. TAKEPRON [Concomitant]
     Indication: GASTRITIS
     Route: 048
     Dates: start: 20120507
  18. MOHRUS TAPE L [Concomitant]
     Indication: RHEUMATOID ARTHRITIS
     Route: 062
     Dates: start: 20120513
  19. NAUZELIN OD [Concomitant]
     Indication: PROPHYLAXIS OF NAUSEA AND VOMITING
     Route: 048
     Dates: start: 20121017, end: 20130221
  20. THEODUR [Concomitant]
     Indication: ASTHMA
     Route: 048
  21. MUCODYNE [Concomitant]
     Indication: ASTHMA
     Route: 048
  22. SYMBICORT [Concomitant]
     Indication: ASTHMA
     Route: 048
  23. MUCOSOLVAN L [Concomitant]
     Indication: ASTHMA
     Route: 048
  24. ALESION [Concomitant]
     Indication: ASTHMA
     Route: 048
  25. BISOLVON [Concomitant]
     Indication: ASTHMA
     Route: 048
     Dates: start: 20130108

REACTIONS (1)
  - Pneumocystis jirovecii pneumonia [Recovered/Resolved]
